FAERS Safety Report 8076620-2 (Version None)
Quarter: 2012Q1

REPORT INFORMATION
  Report Type: 
  Country: None (occurrence: None)
  Receive Date: 20120127
  Receipt Date: 20120119
  Transmission Date: 20120608
  Serious: Yes (Other)
  Sender: FDA-Public Use
  Company Number: US-JNJFOC-20120108437

PATIENT
  Sex: Male
  Weight: 80.29 kg

DRUGS (1)
  1. XARELTO [Suspect]
     Indication: ATRIAL FIBRILLATION
     Route: 048
     Dates: start: 20120105

REACTIONS (6)
  - HEADACHE [None]
  - DIARRHOEA [None]
  - NAUSEA [None]
  - EPISTAXIS [None]
  - MUSCLE SPASMS [None]
  - VERTIGO [None]
